FAERS Safety Report 9556638 (Version 4)
Quarter: 2014Q1

REPORT INFORMATION
  Report Type: Spontaneous
  Country: US (occurrence: US)
  Receive Date: 20130926
  Receipt Date: 20140207
  Transmission Date: 20141002
  Serious: Yes (Other)
  Sender: FDA-Public Use
  Company Number: US-PFIZER INC-2013275050

PATIENT
  Age: 56 Year
  Sex: Female
  Weight: 65.76 kg

DRUGS (15)
  1. NEURONTIN [Suspect]
     Indication: NEURALGIA
     Dosage: UNK
  2. GABAPENTIN [Suspect]
     Indication: NEURALGIA
     Dosage: UNK
  3. ZANTAC [Concomitant]
     Indication: GASTROOESOPHAGEAL REFLUX DISEASE
     Dosage: 300 MG, 2X/DAY
  4. EFFEXOR-XR [Concomitant]
     Indication: DEPRESSION
     Dosage: 75 MG, 2X/DAY (150 MG DAILY)
     Route: 048
  5. LOMOTIL [Concomitant]
     Dosage: 1-2 TABLETS OF 2.5MG, 4X/DAY
  6. LEVOTHYROXINE [Concomitant]
     Indication: HYPOTHYROIDISM
     Dosage: ^25 MG^, DAILY
  7. DICLOFENAC [Concomitant]
     Indication: ANTIINFLAMMATORY THERAPY
     Dosage: 75 MG, 2X/DAY
     Route: 048
  8. DICLOFENAC [Concomitant]
     Dosage: 75 MG, 1X/DAY
     Route: 048
  9. LORTAB [Concomitant]
     Dosage: 75/325, FOUR TIMES DAILY
  10. MORPHINE SULFATE ER [Concomitant]
     Dosage: 30 MG, EVERY 12 HOURS
  11. LEVOXYL [Concomitant]
     Dosage: 125 MG, DAILY
     Route: 048
  12. FUROSEMIDE [Concomitant]
     Dosage: 20 MG, DAILY
     Route: 048
  13. LYRICA [Concomitant]
     Dosage: 100 MG, 2X/DAY
     Route: 048
  14. FIORICET [Concomitant]
     Dosage: 1 (NO UNITS), EVERY 6 HOURS
     Route: 048
  15. RANITIDINE [Concomitant]
     Dosage: 300 MG, DAILY
     Route: 048

REACTIONS (3)
  - Off label use [Recovered/Resolved]
  - Local swelling [Recovered/Resolved]
  - Joint swelling [Recovered/Resolved]
